FAERS Safety Report 25911439 (Version 1)
Quarter: 2025Q4

REPORT INFORMATION
  Report Type: Spontaneous
  Country: UA (occurrence: UA)
  Receive Date: 20251013
  Receipt Date: 20251013
  Transmission Date: 20260117
  Serious: Yes (Other)
  Sender: ROCHE
  Company Number: UA-ROCHE-10000408813

PATIENT

DRUGS (3)
  1. ATEZOLIZUMAB [Suspect]
     Active Substance: ATEZOLIZUMAB
     Indication: Small cell lung cancer
     Route: 065
  2. ETOPOSIDE [Suspect]
     Active Substance: ETOPOSIDE
     Indication: Small cell lung cancer
     Route: 065
  3. PLATINUM [Suspect]
     Active Substance: PLATINUM
     Indication: Small cell lung cancer
     Route: 065

REACTIONS (1)
  - Disease progression [Unknown]
